FAERS Safety Report 9373090 (Version 1)
Quarter: 2013Q2

REPORT INFORMATION
  Report Type: Spontaneous
  Country: RS (occurrence: RS)
  Receive Date: 20130627
  Receipt Date: 20130627
  Transmission Date: 20140414
  Serious: Yes (Other)
  Sender: FDA-Public Use
  Company Number: RS-PFIZER INC-2013191336

PATIENT
  Age: 45 Year
  Sex: Male
  Weight: 85 kg

DRUGS (5)
  1. CISPLATIN [Suspect]
     Indication: OESOPHAGEAL CARCINOMA
     Dosage: 0.5 MG/ML, 4 IN 1 WK
     Route: 042
     Dates: start: 20130523, end: 20130523
  2. DEXASON [Concomitant]
     Dosage: 4MG, 3 AMPOULES
  3. RANITIDINE [Concomitant]
     Dosage: 50MG, 1 AMPOULE
     Route: 042
  4. DORMICUM [Concomitant]
     Dosage: 15MG
  5. ONDANSAN [Concomitant]
     Dosage: 8MG, 1 TABLET DAILY

REACTIONS (5)
  - Rash macular [Recovered/Resolved]
  - Pruritus [Recovered/Resolved]
  - Skin burning sensation [Recovered/Resolved]
  - Oropharyngeal pain [Recovered/Resolved]
  - Hypersensitivity [Recovered/Resolved]
